FAERS Safety Report 6084799-7 (Version None)
Quarter: 2009Q1

REPORT INFORMATION
  Report Type: 
  Country: None (occurrence: None)
  Receive Date: 20090219
  Receipt Date: 20090211
  Transmission Date: 20090719
  Serious: Yes (Death)
  Sender: FDA-Public Use
  Company Number: US-GILEAD-2009-0020092

PATIENT
  Sex: Female
  Weight: 65.83 kg

DRUGS (23)
  1. LETAIRIS [Suspect]
     Indication: PULMONARY ARTERIAL HYPERTENSION
     Route: 048
     Dates: start: 20081212
  2. LIPITOR [Concomitant]
  3. BENAZEPRIL HYDROCHLORIDE [Concomitant]
  4. TERAZOSIN HCL [Concomitant]
  5. WARFARIN SODIUM [Concomitant]
  6. TORSEMIDE [Concomitant]
  7. ASPIRIN [Concomitant]
  8. ALDACTONE [Concomitant]
  9. ZYRTEC [Concomitant]
  10. ATARAX [Concomitant]
  11. HYDROCODONE BITARTRATE + ACETAMINOPHEN [Concomitant]
  12. MORPHINE [Concomitant]
  13. NOVOLIN [Concomitant]
  14. TRAZODONE HCL [Concomitant]
  15. MIRTAZAPINE [Concomitant]
  16. LORAZEPAM [Concomitant]
  17. HUMIBID [Concomitant]
  18. AMBIEN [Concomitant]
  19. DOCUSATE SODIUM [Concomitant]
  20. LOPERAMIDE HCL [Concomitant]
  21. BISACODYL [Concomitant]
  22. POTASSIUM CL [Concomitant]
  23. CENTRUM SILVER [Concomitant]

REACTIONS (3)
  - CARDIAC FAILURE CONGESTIVE [None]
  - CORONARY ARTERY DISEASE [None]
  - PULMONARY HYPERTENSION [None]
